FAERS Safety Report 5381078-8 (Version None)
Quarter: 2007Q3

REPORT INFORMATION
  Report Type: 
  Country: None (occurrence: None)
  Receive Date: 20070706
  Receipt Date: 20070626
  Transmission Date: 20080115
  Serious: Yes (Other)
  Sender: FDA-Public Use
  Company Number: US-PFIZER INC-2007037978

PATIENT
  Sex: Female
  Weight: 47.6 kg

DRUGS (3)
  1. CHANTIX [Suspect]
     Indication: SMOKING CESSATION THERAPY
     Dates: start: 20070219, end: 20070303
  2. EFFEXOR [Concomitant]
     Indication: DEPRESSION
  3. ESTROGENS [Concomitant]

REACTIONS (13)
  - BACK PAIN [None]
  - BALANCE DISORDER [None]
  - CONTUSION [None]
  - GAIT DISTURBANCE [None]
  - HEADACHE [None]
  - HYPERHIDROSIS [None]
  - INFLAMMATION [None]
  - MALAISE [None]
  - MIGRAINE [None]
  - MONOPLEGIA [None]
  - MUSCLE TWITCHING [None]
  - NERVE INJURY [None]
  - RED BLOOD CELL ABNORMALITY [None]
